FAERS Safety Report 4485624-8 (Version None)
Quarter: 2004Q4

REPORT INFORMATION
  Report Type: 
  Country: None (occurrence: None)
  Receive Date: 20041026
  Receipt Date: 20041020
  Transmission Date: 20050328
  Serious: Yes (Hospitalization)
  Sender: FDA-Public Use
  Company Number: DE-MERCK-0410DEU00604

PATIENT
  Age: 69 Year
  Sex: Female

DRUGS (4)
  1. VIOXX [Suspect]
     Indication: INTERVERTEBRAL DISC DISORDER
     Route: 048
     Dates: start: 20040101, end: 20040101
  2. CALCIUM CITRATE AND CHOLECALCIFEROL [Concomitant]
     Route: 065
  3. GINKGO BILOBA EXTRACT [Concomitant]
     Route: 065
  4. ISOPTIN [Concomitant]
     Route: 048

REACTIONS (3)
  - ARRHYTHMIA [None]
  - HYPERTENSION [None]
  - HYPERTENSIVE CRISIS [None]
